FAERS Safety Report 9438506 (Version 1)
Quarter: 2013Q3

REPORT INFORMATION
  Report Type: Report from Study
  Country: DE (occurrence: DE)
  Receive Date: 20130802
  Receipt Date: 20130802
  Transmission Date: 20140515
  Serious: Yes (Hospitalization)
  Sender: FDA-Public Use
  Company Number: DE-CELGENEUS-062-21880-13050938

PATIENT
  Age: 49 Year
  Sex: Male

DRUGS (9)
  1. REVLIMID [Suspect]
     Indication: PLASMA CELL MYELOMA
     Dosage: 25 MILLIGRAM
     Route: 048
     Dates: start: 20130409, end: 20130429
  2. REVLIMID [Suspect]
     Dosage: 25 MILLIGRAM
     Route: 048
     Dates: start: 20130513, end: 20130602
  3. REVLIMID [Suspect]
     Dosage: 25 MILLIGRAM
     Route: 048
     Dates: start: 20130618, end: 20130708
  4. ASA [Concomitant]
     Indication: PRODUCT USED FOR UNKNOWN INDICATION
     Route: 065
     Dates: start: 20130409
  5. PREDNISOLONE [Concomitant]
     Indication: HYPERSENSITIVITY VASCULITIS
     Route: 065
  6. PREDNISOLONE [Concomitant]
     Route: 065
  7. PANTOPRAZOL [Concomitant]
     Indication: PROPHYLAXIS
     Route: 065
  8. TRIAMCINOLONE ACETONID [Concomitant]
     Indication: PRODUCT USED FOR UNKNOWN INDICATION
     Route: 065
  9. BONDRONAT [Concomitant]
     Indication: PRODUCT USED FOR UNKNOWN INDICATION
     Dosage: 8 MILLIGRAM
     Route: 065
     Dates: start: 20130430

REACTIONS (1)
  - Hypersensitivity vasculitis [Recovered/Resolved]
